FAERS Safety Report 4359625-4 (Version None)
Quarter: 2004Q2

REPORT INFORMATION
  Report Type: 
  Country: None (occurrence: None)
  Receive Date: 20040513
  Receipt Date: 20040507
  Transmission Date: 20050107
  Serious: Yes (Other)
  Sender: FDA-Public Use
  Company Number: K200400381

PATIENT
  Age: 56 Year
  Sex: Male

DRUGS (2)
  1. ALTACE [Suspect]
     Indication: ALBUMINURIA
     Dosage: 2.5 MG, QD, ORAL
     Route: 048
     Dates: start: 20031210, end: 20040210
  2. HUMULIN (INSULIN HUMAN, INSULIN ISOPHANE, HUMAN BIOSYNTHETIC) [Concomitant]

REACTIONS (3)
  - ANAEMIA [None]
  - HEPATITIS C [None]
  - HEPATITIS CHOLESTATIC [None]
